FAERS Safety Report 21463352 (Version 3)
Quarter: 2025Q3

REPORT INFORMATION
  Report Type: Spontaneous
  Country: US (occurrence: US)
  Receive Date: 20221017
  Receipt Date: 20250811
  Transmission Date: 20251021
  Serious: No
  Sender: ABBVIE
  Company Number: US-ABBVIE-4153933

PATIENT
  Age: 44 Year
  Sex: Male

DRUGS (2)
  1. ANDROGEL [Suspect]
     Active Substance: TESTOSTERONE
     Indication: Androgen replacement therapy
     Route: 061
  2. TESTOSTERONE CYPIONATE [Suspect]
     Active Substance: TESTOSTERONE CYPIONATE
     Indication: Androgen replacement therapy
     Route: 030

REACTIONS (3)
  - Headache [Unknown]
  - Haemoglobin increased [Unknown]
  - Patient dissatisfaction with treatment [Unknown]
